FAERS Safety Report 7816654-3 (Version None)
Quarter: 2011Q4

REPORT INFORMATION
  Report Type: 
  Country: None (occurrence: None)
  Receive Date: 20111017
  Receipt Date: 20111007
  Transmission Date: 20120403
  Serious: Yes (Other)
  Sender: FDA-Public Use
  Company Number: DE-US-EMD SERONO, INC.-7088208

PATIENT
  Age: 44 Year
  Sex: Female

DRUGS (1)
  1. REBIF [Suspect]
     Indication: MULTIPLE SCLEROSIS
     Route: 058
     Dates: start: 20110928

REACTIONS (6)
  - FLUID RETENTION [None]
  - MUSCLE TIGHTNESS [None]
  - PARAESTHESIA [None]
  - HYPOAESTHESIA ORAL [None]
  - DERMATITIS BULLOUS [None]
  - SEXUAL DYSFUNCTION [None]
